FAERS Safety Report 10238540 (Version 1)
Quarter: 2014Q2

REPORT INFORMATION
  Report Type: Spontaneous
  Country: JP (occurrence: JP)
  Receive Date: 20140616
  Receipt Date: 20140616
  Transmission Date: 20141212
  Serious: Yes (Other)
  Sender: FDA-Public Use
  Company Number: JP-MYLANLABS-2014S1013727

PATIENT
  Age: 92 Year
  Sex: Female

DRUGS (5)
  1. PREDNISOLONE [Suspect]
     Indication: PEMPHIGUS
     Route: 048
  2. PREDNISOLONE [Suspect]
     Indication: PEMPHIGUS
     Route: 048
  3. PREDNISOLONE [Suspect]
     Indication: PEMPHIGUS
     Route: 048
  4. NSAID^S [Suspect]
     Indication: PEMPHIGUS
  5. IMMUNOGLOBULIN /07494701/ [Concomitant]
     Indication: PEMPHIGUS
     Route: 041

REACTIONS (3)
  - Spinal compression fracture [Unknown]
  - Gastric ulcer [Unknown]
  - Deep vein thrombosis [Unknown]
